FAERS Safety Report 9825596 (Version 3)
Quarter: 2014Q1

REPORT INFORMATION
  Report Type: Report from Study
  Country: FR (occurrence: FR)
  Receive Date: 20140117
  Receipt Date: 20140129
  Transmission Date: 20141002
  Serious: Yes (Hospitalization, Other)
  Sender: FDA-Public Use
  Company Number: FR-ROCHE-1161907

PATIENT
  Age: 67 Year
  Sex: Female

DRUGS (19)
  1. RITUXIMAB [Suspect]
     Indication: RHEUMATOID ARTHRITIS
     Route: 065
     Dates: start: 20061227
  2. RITUXIMAB [Suspect]
     Route: 065
     Dates: start: 20070110
  3. RITUXIMAB [Suspect]
     Route: 065
     Dates: start: 20080618
  4. RITUXIMAB [Suspect]
     Route: 065
     Dates: start: 20100426
  5. RITUXIMAB [Suspect]
     Route: 065
     Dates: start: 20100511, end: 20120119
  6. TOCILIZUMAB [Suspect]
     Indication: RHEUMATOID ARTHRITIS
     Route: 065
     Dates: start: 201302
  7. METHOTREXATE [Concomitant]
  8. REMICADE [Concomitant]
  9. CORTANCYL [Concomitant]
     Route: 065
     Dates: start: 20061227
  10. CORTANCYL [Concomitant]
     Route: 065
     Dates: start: 20070110
  11. CORTANCYL [Concomitant]
     Route: 065
     Dates: start: 20080618
  12. CORTANCYL [Concomitant]
     Route: 065
     Dates: start: 20100511
  13. METHYLPREDNISOLONE [Concomitant]
     Route: 065
  14. METHYLPREDNISOLONE [Concomitant]
     Route: 065
  15. METHYLPREDNISOLONE [Concomitant]
     Route: 065
  16. PARACETAMOL [Concomitant]
     Route: 065
     Dates: start: 20080618
  17. SOLU-MEDROL [Concomitant]
  18. ORENCIA [Concomitant]
     Route: 065
     Dates: start: 20120209
  19. AMLOR [Concomitant]
     Route: 065

REACTIONS (20)
  - Bronchopneumonia [Recovered/Resolved]
  - Cerebral disorder [Not Recovered/Not Resolved]
  - Subcutaneous abscess [Recovered/Resolved]
  - Infusion related reaction [Recovered/Resolved]
  - Headache [Recovered/Resolved]
  - Asthenia [Recovered/Resolved]
  - Chills [Recovered/Resolved]
  - Sleep disorder [Not Recovered/Not Resolved]
  - Tachycardia [Not Recovered/Not Resolved]
  - Burning sensation [Not Recovered/Not Resolved]
  - Visual field defect [Not Recovered/Not Resolved]
  - Optic nerve injury [Not Recovered/Not Resolved]
  - Abscess limb [Recovered/Resolved]
  - Weight increased [Unknown]
  - Cough [Recovered/Resolved]
  - Vomiting [Recovered/Resolved]
  - Headache [Unknown]
  - Visual impairment [Unknown]
  - Urinary tract infection [Unknown]
  - Asthenia [Recovered/Resolved]
